FAERS Safety Report 6594528-6 (Version None)
Quarter: 2010Q1

REPORT INFORMATION
  Report Type: 
  Country: None (occurrence: None)
  Receive Date: 20100222
  Receipt Date: 20100210
  Transmission Date: 20100710
  Serious: Yes (Hospitalization)
  Sender: FDA-Public Use
  Company Number: PHEH2009US14055

PATIENT
  Sex: Female
  Weight: 80 kg

DRUGS (2)
  1. EXJADE [Suspect]
     Indication: THALASSAEMIA
     Dosage: 1500 MG DAILY
     Route: 048
     Dates: start: 20091001
  2. EXJADE [Suspect]
     Indication: SICKLE CELL ANAEMIA

REACTIONS (2)
  - DISEASE PROGRESSION [None]
  - SICKLE CELL ANAEMIA WITH CRISIS [None]
